FAERS Safety Report 6051888-2 (Version None)
Quarter: 2009Q1

REPORT INFORMATION
  Report Type: 
  Country: None (occurrence: None)
  Receive Date: 20090126
  Receipt Date: 20090121
  Transmission Date: 20090719
  Serious: Yes (Other)
  Sender: FDA-Public Use
  Company Number: US-JNJCH-2009001894

PATIENT
  Sex: Male

DRUGS (1)
  1. LISTERINE WHITENING QUICK DISSOLVING STRIPS [Suspect]
     Indication: DENTAL CARE
     Dosage: TEXT:UNSPECIFIED
     Route: 048

REACTIONS (4)
  - APPLICATION SITE PAIN [None]
  - CAUSTIC INJURY [None]
  - GINGIVAL DISCOLOURATION [None]
  - PRODUCT QUALITY ISSUE [None]
